FAERS Safety Report 14572280 (Version 1)
Quarter: 2018Q1

REPORT INFORMATION
  Report Type: Spontaneous
  Country: GB (occurrence: GB)
  Receive Date: 20180226
  Receipt Date: 20180226
  Transmission Date: 20180509
  Serious: Yes (Disabling)
  Sender: FDA-Public Use
  Company Number: GB-JNJFOC-20180229831

PATIENT
  Age: 71 Year
  Sex: Female
  Weight: 72 kg

DRUGS (7)
  1. XARELTO [Suspect]
     Active Substance: RIVAROXABAN
     Indication: ATRIAL FIBRILLATION
     Route: 048
  2. MOVICOL [Concomitant]
     Active Substance: POLYETHYLENE GLYCOL 3350\POTASSIUM CHLORIDE\SODIUM BICARBONATE\SODIUM CHLORIDE
     Indication: DYSPEPSIA
     Route: 065
  3. SALBUTAMOL [Concomitant]
     Active Substance: ALBUTEROL
     Indication: ASTHMA
     Route: 065
  4. BECLOMETASONE [Concomitant]
     Active Substance: BECLOMETHASONE DIPROPIONATE
     Route: 065
  5. HYPROMELLOSE [Concomitant]
     Active Substance: HYPROMELLOSES
     Indication: DRY EYE
     Route: 065
  6. FLUTICASONE PROPIONATE W/SALMETEROL XINAFOATE [Concomitant]
     Active Substance: FLUTICASONE PROPIONATE\SALMETEROL XINAFOATE
     Indication: ASTHMA
     Route: 065
  7. DILTIAZEM. [Concomitant]
     Active Substance: DILTIAZEM
     Indication: ATRIAL FIBRILLATION
     Route: 065

REACTIONS (12)
  - Deafness unilateral [Recovering/Resolving]
  - Hypoacusis [Recovering/Resolving]
  - Eye pain [Recovering/Resolving]
  - Epistaxis [Recovering/Resolving]
  - Small intestinal haemorrhage [Recovering/Resolving]
  - Dizziness [Recovering/Resolving]
  - Head discomfort [Recovering/Resolving]
  - Haemarthrosis [Recovering/Resolving]
  - Asthenia [Recovering/Resolving]
  - General physical health deterioration [Recovering/Resolving]
  - Headache [Recovering/Resolving]
  - Dyspepsia [Recovering/Resolving]

NARRATIVE: CASE EVENT DATE: 20160701
